FAERS Safety Report 9802501 (Version 2)
Quarter: 2014Q1

REPORT INFORMATION
  Report Type: Spontaneous
  Country: SE (occurrence: SE)
  Receive Date: 20140107
  Receipt Date: 20140325
  Transmission Date: 20141002
  Serious: Yes (Hospitalization, Disabling, Other)
  Sender: FDA-Public Use
  Company Number: SE-ROCHE-1330058

PATIENT
  Age: 78 Year
  Sex: Female

DRUGS (2)
  1. LUCENTIS [Suspect]
     Indication: AGE-RELATED MACULAR DEGENERATION
     Route: 050
     Dates: start: 20110407, end: 20131216
  2. ZOPICLONE [Concomitant]
     Route: 065
     Dates: start: 20111025

REACTIONS (5)
  - Retinal artery embolism [Not Recovered/Not Resolved]
  - Retinal artery occlusion [Unknown]
  - Retinal vascular disorder [Unknown]
  - Blindness unilateral [Unknown]
  - Macular oedema [Unknown]
